FAERS Safety Report 4744817-2 (Version None)
Quarter: 2005Q3

REPORT INFORMATION
  Report Type: 
  Country: None (occurrence: None)
  Receive Date: 20050815
  Receipt Date: 20050808
  Transmission Date: 20060218
  Serious: Yes (Other)
  Sender: FDA-Public Use
  Company Number: 200516139US

PATIENT
  Sex: Female
  Weight: 62 kg

DRUGS (27)
  1. ARAVA [Suspect]
     Indication: RHEUMATOID ARTHRITIS
     Route: 048
     Dates: start: 20040101, end: 20050505
  2. PRENATAL VITAMINS [Concomitant]
     Dosage: DOSE: UNKNOWN
     Dates: start: 20050505
  3. CALCIUM GLUCONATE [Concomitant]
     Dosage: DOSE: UNKNOWN
     Dates: start: 20050519, end: 20050704
  4. POTASSIUM CHLORIDE [Concomitant]
     Dosage: DOSE: UNKNOWN
  5. PREDNISONE [Concomitant]
     Dosage: DOSE: UNKNOWN
     Dates: start: 20050401
  6. ENBREL [Concomitant]
     Dosage: DOSE: UNKNOWN
     Dates: start: 20050429, end: 20050515
  7. FLEXERIL [Concomitant]
     Dosage: DOSE: UNKNOWN
     Dates: start: 20050423
  8. SOMA [Concomitant]
     Dosage: DOSE: UNKNOWN
     Dates: start: 20050430
  9. DARVOCET-N 100 [Concomitant]
     Dosage: DOSE: UNKNOWN
     Dates: start: 20050416, end: 20050419
  10. ZYRTEC [Concomitant]
     Dosage: DOSE: UNKNOWN
     Dates: start: 20050426, end: 20050630
  11. SINGULAIR [Concomitant]
     Dosage: DOSE: UNKNOWN
     Dates: end: 20050505
  12. ALBUTEROL [Concomitant]
     Dosage: DOSE: UNKNOWN
     Dates: end: 20050517
  13. PULMICORT [Concomitant]
     Dosage: DOSE: UNKNOWN
     Dates: start: 20050510, end: 20050524
  14. HYDROCHLOROTHIAZIDE [Concomitant]
     Dosage: DOSE: UNKNOWN
     Dates: end: 20050505
  15. LEVAQUIN [Concomitant]
     Dosage: DOSE: UNKNOWN
     Dates: start: 20050427, end: 20050430
  16. ACIPHEX [Concomitant]
     Dosage: DOSE: UNKNOWN
     Dates: end: 20050505
  17. NYSTATIN [Concomitant]
     Dosage: DOSE: UNKNOWN
     Dates: end: 20050505
  18. ZYBAN [Concomitant]
     Dosage: DOSE: UNKNOWN
     Dates: start: 20050401, end: 20050410
  19. CELESTONE TAB [Concomitant]
     Dosage: DOSE: UNKNOWN
     Dates: start: 20050608
  20. DARVOCET-N 100 [Concomitant]
     Dosage: DOSE: UNKNOWN
     Dates: start: 20050729, end: 20050805
  21. KEFLEX [Concomitant]
     Dosage: DOSE: UNKNOWN
     Dates: start: 20050729, end: 20050807
  22. ALEVE [Concomitant]
     Dosage: DOSE: UNKNOWN
     Dates: start: 20050201, end: 20050505
  23. MOTRIN [Concomitant]
     Dosage: DOSE: UNKNOWN
     Dates: start: 20050409, end: 20050419
  24. BENADRYL [Concomitant]
     Dosage: DOSE: UNKNOWN
     Dates: start: 20050415, end: 20050426
  25. TYLENOL SINUS [Concomitant]
     Dosage: DOSE: UNKNOWN
     Dates: start: 20050418, end: 20050426
  26. TUMS [Concomitant]
     Dosage: DOSE: UNKNOWN
     Dates: start: 20050707
  27. CHOLESTYRAMINE [Concomitant]
     Dosage: DOSE: UNKNOWN
     Dates: start: 20050501, end: 20050516

REACTIONS (3)
  - CONGENITAL CYSTIC KIDNEY DISEASE [None]
  - DRUG EXPOSURE DURING PREGNANCY [None]
  - PREGNANCY [None]
